FAERS Safety Report 6203132-0 (Version None)
Quarter: 2009Q2

REPORT INFORMATION
  Report Type: 
  Country: None (occurrence: None)
  Receive Date: 20090522
  Receipt Date: 20090522
  Transmission Date: 20091009
  Serious: Yes (Life-Threatening)
  Sender: FDA-Public Use
  Company Number: None

PATIENT
  Age: 82 Year
  Sex: Female
  Weight: 49 kg

DRUGS (4)
  1. HEPARIN [Suspect]
     Indication: CARDIAC OPERATION
     Dates: start: 20090319
  2. LOVENOX [Suspect]
     Dosage: 50MG EVERY 12 HOURS X 2 DOSES
     Dates: start: 20090325
  3. PLAVIX [Concomitant]
  4. CARDIZEM [Concomitant]

REACTIONS (4)
  - ANTIBODY TEST POSITIVE [None]
  - ATRIAL FIBRILLATION [None]
  - HEPARIN-INDUCED THROMBOCYTOPENIA [None]
  - POST PROCEDURAL COMPLICATION [None]
